FAERS Safety Report 7894254-7 (Version None)
Quarter: 2011Q4

REPORT INFORMATION
  Report Type: 
  Country: None (occurrence: None)
  Receive Date: 20111104
  Receipt Date: 20111020
  Transmission Date: 20120403
  Serious: Yes (Death, Hospitalization, Other)
  Sender: FDA-Public Use
  Company Number: ES-WATSON-2011-15966

PATIENT
  Age: 78 Year
  Sex: Female

DRUGS (4)
  1. OMEPRAZOLE [Suspect]
     Indication: PRODUCT USED FOR UNKNOWN INDICATION
     Dosage: 20 MG, DAILY
     Route: 065
  2. CARBAMAZEPINE [Suspect]
     Indication: RESTLESS LEGS SYNDROME
  3. CARBAMAZEPINE [Suspect]
     Indication: TREMOR
     Dosage: 100 MG, UNK
     Route: 065
  4. CILOSTAZOL [Suspect]
     Indication: PRODUCT USED FOR UNKNOWN INDICATION
     Dosage: 100 MG, DAILY
     Route: 065

REACTIONS (6)
  - TOXIC EPIDERMAL NECROLYSIS [None]
  - DRUG INTERACTION [None]
  - ACINETOBACTER TEST POSITIVE [None]
  - SEPTIC SHOCK [None]
  - STAPHYLOCOCCUS TEST POSITIVE [None]
  - ENTEROBACTER TEST POSITIVE [None]
